FAERS Safety Report 4369952-2 (Version None)
Quarter: 2004Q2

REPORT INFORMATION
  Report Type: 
  Country: None (occurrence: None)
  Receive Date: 20040527
  Receipt Date: 20040506
  Transmission Date: 20050107
  Serious: Yes (Hospitalization)
  Sender: FDA-Public Use
  Company Number: FR_040504071

PATIENT
  Age: 58 Year
  Sex: Male

DRUGS (14)
  1. GEMZAR [Suspect]
     Indication: LUNG ADENOCARCINOMA
     Dosage: 2500 M/2 OTHER
     Route: 050
     Dates: start: 20040225, end: 20040304
  2. PROZAC [Concomitant]
  3. CISPLATIN [Concomitant]
  4. GLUCOPHAGE [Concomitant]
  5. NOVONORM (REPAGLINIDE) [Concomitant]
  6. TOPALGIC (TRAMADOL HYDROCHLORIDE) [Concomitant]
  7. MORPHINE SULFATE [Concomitant]
  8. MORPHINE SULFATE [Concomitant]
  9. ANAUSIN (METOCLOPRAMIDE HYDROCHLORIDE) [Concomitant]
  10. PRIMPERAN TAB [Concomitant]
  11. ONDANSETRON HYDROCHLORIDE [Concomitant]
  12. LEXOMIL (BROMAZEPAM) [Concomitant]
  13. IMOVANE (ZOPICLONE) [Concomitant]
  14. ATARAX [Concomitant]

REACTIONS (5)
  - CANCER PAIN [None]
  - CATHETER SITE INFECTION [None]
  - COMA [None]
  - INTERSTITIAL LUNG DISEASE [None]
  - RESPIRATORY DISTRESS [None]
